FAERS Safety Report 7170571-3 (Version None)
Quarter: 2010Q4

REPORT INFORMATION
  Report Type: 
  Country: None (occurrence: None)
  Receive Date: 20101214
  Receipt Date: 20101214
  Transmission Date: 20110411
  Serious: No
  Sender: FDA-Public Use
  Company Number: None

PATIENT
  Age: 60 Year
  Sex: Female
  Weight: 68.9467 kg

DRUGS (1)
  1. NEXIUM [Suspect]
     Indication: GASTROOESOPHAGEAL REFLUX DISEASE
     Dosage: 20 MG TWICE A DAY PO  AT LEAST 5 MOS LAST TIME
     Route: 048

REACTIONS (4)
  - DRUG INEFFECTIVE [None]
  - MYALGIA [None]
  - PAIN IN EXTREMITY [None]
  - PETECHIAE [None]
